FAERS Safety Report 8912978 (Version 2)
Quarter: 2013Q2

REPORT INFORMATION
  Report Type: Spontaneous
  Country: DE (occurrence: DE)
  Receive Date: 20121116
  Receipt Date: 20130425
  Transmission Date: 20140414
  Serious: Yes (Hospitalization)
  Sender: FDA-Public Use
  Company Number: DE-BRISTOL-MYERS SQUIBB COMPANY-17112327

PATIENT
  Age: 55 Year
  Sex: Female

DRUGS (5)
  1. ABILIFY [Suspect]
     Route: 048
     Dates: start: 20120211, end: 20120220
  2. HALOPERIDOL [Suspect]
     Dosage: FEB11:22OCT11:3MG/D?23OCT11:16FEB12:4MG/D
     Route: 048
     Dates: start: 201102, end: 20120216
  3. TAVOR [Suspect]
     Route: 048
     Dates: start: 20120125, end: 20120208
  4. RAMIPRIL [Concomitant]
     Route: 048
  5. THYROXINE [Concomitant]
     Dosage: UNK-07FEB2012:75MCG?08FEB2012-ONG:50MCG
     Route: 048

REACTIONS (5)
  - Suicide attempt [Unknown]
  - Depression [Unknown]
  - Craniocerebral injury [Unknown]
  - Subarachnoid haemorrhage [Unknown]
  - Loss of consciousness [Unknown]
